FAERS Safety Report 7584414-7 (Version None)
Quarter: 2011Q2

REPORT INFORMATION
  Report Type: 
  Country: None (occurrence: None)
  Receive Date: 20110630
  Receipt Date: 20110621
  Transmission Date: 20111010
  Serious: Yes (Hospitalization, Other)
  Sender: FDA-Public Use
  Company Number: US-BAYER-2011-013037

PATIENT
  Age: 27 Year
  Sex: Female
  Weight: 74.83 kg

DRUGS (4)
  1. MINOCYCLINE HCL [Concomitant]
     Dosage: UNK
     Dates: start: 20050101
  2. NSAID'S [Concomitant]
  3. YAZ [Suspect]
     Indication: ORAL CONTRACEPTION
     Dates: start: 20080701, end: 20100101
  4. YAZ [Suspect]
     Indication: ACNE

REACTIONS (16)
  - TRANSIENT ISCHAEMIC ATTACK [None]
  - EMOTIONAL DISTRESS [None]
  - ARRHYTHMIA [None]
  - EMOTIONAL DISORDER [None]
  - EMBOLISM [None]
  - MYOCARDIAL INFARCTION [None]
  - CHOLECYSTITIS [None]
  - ANXIETY [None]
  - CHEST PAIN [None]
  - THROMBOSIS [None]
  - BILE DUCT STONE [None]
  - INJURY [None]
  - NEPHROPATHY [None]
  - CEREBROVASCULAR ACCIDENT [None]
  - PROCEDURAL PAIN [None]
  - DYSPEPSIA [None]
